FAERS Safety Report 14456908 (Version 2)
Quarter: 2018Q1

REPORT INFORMATION
  Report Type: Report from Study
  Country: US (occurrence: US)
  Receive Date: 20180130
  Receipt Date: 20180216
  Transmission Date: 20180509
  Serious: Yes (Hospitalization, Other)
  Sender: FDA-Public Use
  Company Number: US-GILEAD-2018-0317969

PATIENT
  Age: 58 Year
  Sex: Female

DRUGS (14)
  1. LUTEIN                             /01638501/ [Concomitant]
     Active Substance: LUTEIN
  2. SPIRONOLACTONE. [Concomitant]
     Active Substance: SPIRONOLACTONE
  3. VALSARTAN. [Concomitant]
     Active Substance: VALSARTAN
  4. FISH OIL [Concomitant]
     Active Substance: FISH OIL
  5. LORATADINE. [Concomitant]
     Active Substance: LORATADINE
  6. DIOVAN [Concomitant]
     Active Substance: VALSARTAN
  7. REVATIO [Concomitant]
     Active Substance: SILDENAFIL CITRATE
  8. BUMETANIDE. [Concomitant]
     Active Substance: BUMETANIDE
  9. CALCIUM [Concomitant]
     Active Substance: CALCIUM
  10. AMBRISENTAN [Suspect]
     Active Substance: AMBRISENTAN
     Indication: PULMONARY ARTERIAL HYPERTENSION
     Dosage: 10 MG, QD
     Route: 065
     Dates: start: 20150716
  11. FLUTICASONE. [Concomitant]
     Active Substance: FLUTICASONE
  12. ADCIRCA [Concomitant]
     Active Substance: TADALAFIL
     Indication: PULMONARY ARTERIAL HYPERTENSION
     Dates: start: 20150716
  13. LEVOTHYROXINE. [Concomitant]
     Active Substance: LEVOTHYROXINE
  14. KCL [Concomitant]
     Active Substance: POTASSIUM CHLORIDE

REACTIONS (2)
  - Fall [Not Recovered/Not Resolved]
  - Lumbar vertebral fracture [Unknown]

NARRATIVE: CASE EVENT DATE: 20180114
